FAERS Safety Report 10885622 (Version 3)
Quarter: 2019Q3

REPORT INFORMATION
  Report Type: Spontaneous
  Country: US (occurrence: US)
  Receive Date: 20150304
  Receipt Date: 20190722
  Transmission Date: 20191004
  Serious: Yes (Hospitalization, Other)
  Sender: FDA-Public Use
  Company Number: US-PFIZER INC-2015078222

PATIENT
  Age: 55 Year
  Sex: Female
  Weight: 59 kg

DRUGS (2)
  1. LYRICA [Suspect]
     Active Substance: PREGABALIN
     Indication: PAIN IN EXTREMITY
     Dosage: 75 MG, AS NEEDED (TAKE 1 CAPSULE BY MOUTH EVERY 8-10 HOURS AS NEEDED)
     Route: 048
  2. LYRICA [Suspect]
     Active Substance: PREGABALIN
     Indication: NERVE INJURY
     Dosage: 75 MG, 2X/DAY
     Dates: start: 2011

REACTIONS (5)
  - Diverticulitis [Recovered/Resolved]
  - Malaise [Unknown]
  - Intentional product misuse [Unknown]
  - Pyrexia [Recovered/Resolved]
  - Off label use [Unknown]
